FAERS Safety Report 17277893 (Version 1)
Quarter: 2020Q1

REPORT INFORMATION
  Report Type: Spontaneous
  Country: NL (occurrence: NL)
  Receive Date: 20200116
  Receipt Date: 20200116
  Transmission Date: 20200409
  Serious: Yes (Life-Threatening)
  Sender: FDA-Public Use
  Company Number: NL-FERRINGPH-2020FE00070

PATIENT
  Sex: Female
  Weight: 95 kg

DRUGS (11)
  1. SIGNIFOR [PASIREOTIDE DIASPARTATE] [Concomitant]
  2. OMEPRAZOL A [Concomitant]
  3. METOPROLOLSUCCINAAT [Concomitant]
     Active Substance: METOPROLOL SUCCINATE
  4. EUTHYROX [Concomitant]
     Active Substance: LEVOTHYROXINE SODIUM
  5. METFORMINE [METFORMIN] [Concomitant]
     Active Substance: METFORMIN HYDROCHLORIDE
  6. NIFEDIPINE. [Concomitant]
     Active Substance: NIFEDIPINE
  7. MINIRINMELT [Suspect]
     Active Substance: DESMOPRESSIN ACETATE
     Indication: INCONTINENCE
     Dosage: 1 DF, 1 TIME DAILY
     Route: 065
     Dates: start: 20191127, end: 20191218
  8. HYDROCHLOORTHIAZIDE [Concomitant]
     Active Substance: HYDROCHLOROTHIAZIDE
  9. CAD [Concomitant]
     Active Substance: CALCIUM CARBONATE\CHOLECALCIFEROL
  10. GLEPARK [PRAMIPEXOLE DIHYDROCHLORIDE] [Concomitant]
  11. ENALAPRIL [ENALAPRIL MALEATE] [Concomitant]
     Active Substance: ENALAPRIL MALEATE

REACTIONS (3)
  - Hyponatraemia [Recovering/Resolving]
  - Visual impairment [Recovering/Resolving]
  - Product use in unapproved indication [Recovered/Resolved]
